FAERS Safety Report 9405270 (Version 1)
Quarter: 2013Q3

REPORT INFORMATION
  Report Type: Spontaneous
  Country: FR (occurrence: FR)
  Receive Date: 20130717
  Receipt Date: 20130717
  Transmission Date: 20140515
  Serious: Yes (Life-Threatening, Hospitalization, Other)
  Sender: FDA-Public Use
  Company Number: FR-TEVA-418460ISR

PATIENT
  Age: 42 Year
  Sex: Male

DRUGS (1)
  1. AMOXICILLIN TEVA 500 MG [Suspect]
     Dosage: 1 GRAM DAILY; 2 CAPSULES IN ONE INTAKE
     Route: 048
     Dates: start: 20130522, end: 20130522

REACTIONS (7)
  - Anaphylactic shock [Recovered/Resolved]
  - Urticaria [Recovered/Resolved]
  - Pruritus [Recovered/Resolved]
  - Hypotension [Recovered/Resolved]
  - Pulse abnormal [Recovered/Resolved]
  - Oedema [Recovered/Resolved]
  - Allergic respiratory symptom [Recovered/Resolved]
